FAERS Safety Report 9671223 (Version 2)
Quarter: 2013Q4

REPORT INFORMATION
  Report Type: Spontaneous
  Country: US (occurrence: US)
  Receive Date: 20131106
  Receipt Date: 20131204
  Transmission Date: 20140711
  Serious: No
  Sender: FDA-Public Use
  Company Number: US-JNJFOC-20131016855

PATIENT
  Age: 62 Year
  Sex: Male
  Weight: 86.18 kg

DRUGS (9)
  1. SANDOZ FENTANYL TRANSDERMAL SYSTEM [Suspect]
     Indication: ABDOMINAL PAIN
     Route: 062
     Dates: start: 201307
  2. SANDOZ FENTANYL TRANSDERMAL SYSTEM [Suspect]
     Indication: ABDOMINAL PAIN
     Route: 062
     Dates: start: 201212, end: 201307
  3. SANDOZ FENTANYL TRANSDERMAL SYSTEM [Suspect]
     Indication: ABDOMINAL PAIN
     Route: 062
     Dates: start: 20121105, end: 201212
  4. FLEXERIL [Concomitant]
     Indication: ABDOMINAL RIGIDITY
     Route: 048
     Dates: start: 2011
  5. ADVAIR [Concomitant]
     Indication: ASTHMA
     Route: 045
     Dates: start: 2011
  6. PROVENTIL [Concomitant]
     Indication: ASTHMA
     Route: 048
  7. OMEPRAZOLE [Concomitant]
     Indication: GASTROOESOPHAGEAL REFLUX DISEASE
     Route: 048
     Dates: start: 2009
  8. GABAPENTIN [Concomitant]
     Indication: SLEEP DISORDER THERAPY
     Route: 048
     Dates: start: 2010
  9. OXYCODONE [Concomitant]
     Indication: BREAKTHROUGH PAIN
     Route: 048
     Dates: start: 2009

REACTIONS (5)
  - Drug effect decreased [Not Recovered/Not Resolved]
  - Oesophageal food impaction [Recovered/Resolved]
  - Application site irritation [Recovered/Resolved]
  - Wrong technique in drug usage process [Not Recovered/Not Resolved]
  - Product adhesion issue [Unknown]
